FAERS Safety Report 4786961-X (Version None)
Quarter: 2005Q3

REPORT INFORMATION
  Report Type: 
  Country: None (occurrence: None)
  Receive Date: 20050930
  Receipt Date: 20050104
  Transmission Date: 20060218
  Serious: Yes (Death)
  Sender: FDA-Public Use
  Company Number: 2005FR-00300

PATIENT
  Age: 37 Year
  Sex: Female

DRUGS (2)
  1. CO-PROXAMOL (PARACETAMOL+DEXTROPROPOXYPHENE) [Suspect]
     Dosage: 26 TABLETS ORAL
     Route: 048
     Dates: start: 20041218
  2. CHLORDIAZEPOXIDE [Suspect]
     Dosage: 60 TABLETS, ORAL
     Route: 048
     Dates: start: 20041218

REACTIONS (7)
  - ACIDOSIS [None]
  - CARDIAC ARREST [None]
  - COAGULOPATHY [None]
  - HEPATIC FAILURE [None]
  - INTENTIONAL MISUSE [None]
  - OVERDOSE [None]
  - RESPIRATORY ARREST [None]
